FAERS Safety Report 9629323 (Version 3)
Quarter: 2018Q3

REPORT INFORMATION
  Report Type: Report from Study
  Country: DE (occurrence: DE)
  Receive Date: 20131017
  Receipt Date: 20180724
  Transmission Date: 20181010
  Serious: Yes (Other)
  Sender: FDA-Public Use
  Company Number: DE-PFIZER INC-2013294553

PATIENT
  Age: 37 Year
  Sex: Female
  Weight: 62 kg

DRUGS (6)
  1. FOLIC ACID. [Concomitant]
     Active Substance: FOLIC ACID
     Indication: PROPHYLAXIS OF NEURAL TUBE DEFECT
     Dosage: 0.8 MG, 1X/DAY, 5. ? 12. GESTATIONAL WEEK
     Route: 048
  2. METHYLDOPA. [Suspect]
     Active Substance: METHYLDOPA
     Indication: HYPERTENSION
     Dosage: 250 MG, 1X/DAY (GW 4+5?33+4)
     Route: 048
     Dates: start: 20090922, end: 20100412
  3. PROPRANOLOL HYDROCHLORIDE. [Suspect]
     Active Substance: PROPRANOLOL HYDROCHLORIDE
     Indication: HYPERTENSION
     Dosage: 25 MG, 2X/DAY; 0. ?33.4. GESTATIONAL WEEK (GW 0?33+4)
     Route: 048
     Dates: start: 20090820, end: 20100412
  4. RAMIPRIL. [Suspect]
     Active Substance: RAMIPRIL
     Indication: HYPERTENSION
     Dosage: UNK (0?4+5 WEEKS)
     Route: 048
     Dates: start: 20090820, end: 20090922
  5. METHYLDOPA. [Suspect]
     Active Substance: METHYLDOPA
     Dosage: 1500 MG, 1X/DAY (INCREASEDUP TO 1500 MG/DAY SHORTLY BEFORE BIRTH MAXIUM 6 X 250 MG/D)
     Route: 048
  6. PROGESTERONE. [Suspect]
     Active Substance: PROGESTERONE
     Indication: ABORTION THREATENED
     Dosage: 100 MG,QD (GW 11?14)
     Route: 065
     Dates: start: 20091105, end: 20091126

REACTIONS (5)
  - Complication of pregnancy [Unknown]
  - Abortion threatened [Unknown]
  - Premature labour [Unknown]
  - Pre-eclampsia [Unknown]
  - Gestational diabetes [Unknown]
